FAERS Safety Report 9859092 (Version 1)
Quarter: 2014Q1

REPORT INFORMATION
  Report Type: Spontaneous
  Country: ES (occurrence: None)
  Receive Date: 20140129
  Receipt Date: 20140129
  Transmission Date: 20141002
  Serious: Yes (Death, Hospitalization)
  Sender: FDA-Public Use
  Company Number: 2149598

PATIENT
  Age: 37 Year
  Sex: Female
  Weight: 86 kg

DRUGS (1)
  1. (PACLITAXEL) [Suspect]
     Indication: BREAST CANCER
     Dosage: 100 MG/M2 MILLIGRAM(S)/SQ. METER (1 WEEK)
     Dates: start: 20131219, end: 20140107

REACTIONS (2)
  - Syncope [None]
  - Cardio-respiratory arrest [None]
